FAERS Safety Report 22148847 (Version 2)
Quarter: 2023Q2

REPORT INFORMATION
  Report Type: Spontaneous
  Country: US (occurrence: US)
  Receive Date: 20230328
  Receipt Date: 20230628
  Transmission Date: 20230721
  Serious: No
  Sender: FDA-Public Use
  Company Number: US-CTI BIOPHARMA-2022US03260

PATIENT

DRUGS (3)
  1. VONJO [Suspect]
     Active Substance: PACRITINIB
     Indication: Polycythaemia vera
     Dosage: 200 MG, BID
     Route: 048
     Dates: start: 20221020
  2. VONJO [Suspect]
     Active Substance: PACRITINIB
     Dosage: 200 MG, BID
     Route: 048
     Dates: start: 20221019
  3. LISINOPRIL [Concomitant]
     Active Substance: LISINOPRIL

REACTIONS (8)
  - Abdominal discomfort [Unknown]
  - Off label use [Unknown]
  - Abdominal pain [Unknown]
  - Product dose omission issue [Unknown]
  - Eye pain [Unknown]
  - Lacrimation increased [Unknown]
  - Diarrhoea [Unknown]
  - Nausea [Unknown]
